FAERS Safety Report 6032418-8 (Version None)
Quarter: 2009Q1

REPORT INFORMATION
  Report Type: 
  Country: None (occurrence: None)
  Receive Date: 20090107
  Receipt Date: 20081223
  Transmission Date: 20090719
  Serious: Yes (Death, Hospitalization)
  Sender: FDA-Public Use
  Company Number: KADN20080363

PATIENT
  Age: 56 Year
  Sex: Male

DRUGS (3)
  1. MS CONTIN [Suspect]
     Indication: PAIN
  2. OXYCODONE [Suspect]
     Indication: PAIN
  3. HYDROMORPHONE HCL [Suspect]
     Indication: PAIN

REACTIONS (6)
  - ASTHENIA [None]
  - FATIGUE [None]
  - HYPERAESTHESIA [None]
  - MALIGNANT NEOPLASM PROGRESSION [None]
  - PAIN [None]
  - SEDATION [None]
